FAERS Safety Report 15974635 (Version 3)
Quarter: 2019Q2

REPORT INFORMATION
  Report Type: Spontaneous
  Country: US (occurrence: US)
  Receive Date: 20190218
  Receipt Date: 20190405
  Transmission Date: 20190711
  Serious: Yes (Hospitalization)
  Sender: FDA-Public Use
  Company Number: US-ADAAP-201900028

PATIENT
  Age: 48 Year
  Sex: Male
  Weight: 108.8 kg

DRUGS (4)
  1. AMINO ACID 2.5 G ARGININE/2.5 G LYSINE [Concomitant]
     Indication: DRUG TOXICITY PROPHYLAXIS
     Dosage: 50 G/1000 ML
     Route: 041
     Dates: start: 20190204, end: 20190204
  2. ONDANSETRON [Concomitant]
     Active Substance: ONDANSETRON
     Indication: PROPHYLAXIS OF NAUSEA AND VOMITING
     Route: 048
     Dates: start: 20190204, end: 20190204
  3. LUTATHERA [Suspect]
     Active Substance: LUTETIUM OXODOTREOTIDE LU-177
     Indication: PRODUCT USED FOR UNKNOWN INDICATION
     Dosage: 70 ML/H
     Route: 042
     Dates: start: 20190204, end: 20190204
  4. FOSAPREPITAN [Concomitant]
     Indication: PROPHYLAXIS OF NAUSEA AND VOMITING
     Route: 042
     Dates: start: 20190204, end: 20190204

REACTIONS (2)
  - Hyperammonaemia [Recovered/Resolved]
  - Generalised tonic-clonic seizure [Recovered/Resolved]

NARRATIVE: CASE EVENT DATE: 20190204
